FAERS Safety Report 9318335 (Version 2)
Quarter: 2013Q2

REPORT INFORMATION
  Report Type: Spontaneous
  Country: FR (occurrence: None)
  Receive Date: 20130523
  Receipt Date: 20130617
  Transmission Date: 20140414
  Serious: Yes (Other)
  Sender: FDA-Public Use
  Company Number: TPA2013A03992

PATIENT
  Age: 89 Year
  Sex: Female

DRUGS (2)
  1. ADENURIC (FEBUXOSTAT) [Suspect]
     Indication: GOUT
     Dosage: 80 MG, 1 IN 1 D, ORAL
     Route: 048
     Dates: start: 20130504, end: 20130515
  2. COLCHICINE (COLCHICINE) [Concomitant]

REACTIONS (14)
  - Pruritus [None]
  - Feeling hot [None]
  - Acne [None]
  - Blister [None]
  - Local swelling [None]
  - Unevaluable event [None]
  - Skin discolouration [None]
  - Nervousness [None]
  - Alopecia [None]
  - Blindness [None]
  - Increased appetite [None]
  - Rash morbilliform [None]
  - Urticaria [None]
  - Pruritus [None]
